FAERS Safety Report 6160921-9 (Version None)
Quarter: 2009Q2

REPORT INFORMATION
  Report Type: 
  Country: None (occurrence: None)
  Receive Date: 20090420
  Receipt Date: 20090420
  Transmission Date: 20091009
  Serious: Yes (Life-Threatening, Hospitalization, Other)
  Sender: FDA-Public Use
  Company Number: PHHO2007SE13239

PATIENT
  Sex: Male

DRUGS (8)
  1. CIBADREX T29368+ [Suspect]
     Indication: HYPERTENSION
     Dosage: LEVEL 1
     Route: 048
     Dates: start: 20041214
  2. CIBADREX T29368+ [Suspect]
     Dosage: LEVEL 3
     Route: 048
     Dates: end: 20070806
  3. INSULATARD [Concomitant]
     Indication: DIABETES MELLITUS
     Route: 058
     Dates: start: 19990114
  4. TROMBYL [Concomitant]
     Dates: start: 20051214
  5. BISOPROLOL [Concomitant]
     Indication: HYPERTENSION
     Dates: start: 20050310
  6. GLUCOPHAGE [Concomitant]
     Indication: DIABETES MELLITUS
     Dates: start: 20030316
  7. ALFADIL [Concomitant]
     Indication: HYPERTENSION
     Dates: start: 20051214
  8. ARTONIL [Concomitant]

REACTIONS (6)
  - ANAEMIA [None]
  - BLOOD GLUCOSE INCREASED [None]
  - FATIGUE [None]
  - HYPERKALAEMIA [None]
  - RENAL FAILURE [None]
  - WEIGHT DECREASED [None]
